FAERS Safety Report 24525897 (Version 1)
Quarter: 2024Q4

REPORT INFORMATION
  Report Type: Spontaneous
  Country: GB (occurrence: GB)
  Receive Date: 20241020
  Receipt Date: 20241020
  Transmission Date: 20250115
  Serious: Yes (Other)
  Sender: ORGANON
  Company Number: None

PATIENT
  Age: 64 Year
  Sex: Male
  Weight: 67 kg

DRUGS (12)
  1. EZETIMIBE [Suspect]
     Active Substance: EZETIMIBE
     Dosage: 10 MILLIGRAM
     Dates: start: 20241007
  2. FLUCLOXACILLIN [Concomitant]
     Active Substance: FLUCLOXACILLIN
     Dosage: 1 DOSAGE FORM, Q6H
     Dates: start: 20240925, end: 20241002
  3. DYMISTA [Concomitant]
     Active Substance: AZELASTINE HYDROCHLORIDE\FLUTICASONE PROPIONATE
     Dosage: 4 DOSAGE FORM, Q12H (TWO SPRAYS TO BE USED IN EACH NOSTRIL TWICE A D)
     Route: 045
     Dates: start: 20190211
  4. AMITRIPTYLINE HYDROCHLORIDE [Concomitant]
     Active Substance: AMITRIPTYLINE HYDROCHLORIDE
     Dosage: 1 DOSAGE FORM, QD (AT BEDTIME)
     Dates: start: 20230315
  5. CLONAZEPAM [Concomitant]
     Active Substance: CLONAZEPAM
     Dosage: 4 DOSAGE FORM, QD (AT BED TIME AS DISCUSSED)
     Dates: start: 20230315
  6. SILDENAFIL [Concomitant]
     Active Substance: SILDENAFIL
     Dosage: UNK (USE AS DIRECTED)
     Dates: start: 20230315
  7. FOLIC ACID [Concomitant]
     Active Substance: FOLIC ACID
     Dosage: 1 DOSAGE FORM, QD
     Dates: start: 20230512
  8. OMEPRAZOLE [Concomitant]
     Active Substance: OMEPRAZOLE
     Dosage: 1 DOSAGE FORM (DAILY IF REQUIRED)
     Dates: start: 20230919
  9. LEVOTHYROXINE [Concomitant]
     Active Substance: LEVOTHYROXINE
     Dosage: 1 DOSAGE FORM, QD (EACH MORNING TO TREAT UNDERACTI.)
     Dates: start: 20240125
  10. BEMPEDOIC ACID [Concomitant]
     Active Substance: BEMPEDOIC ACID
     Dosage: 1 DOSAGE FORM, QD
     Dates: start: 20240313, end: 20241010
  11. CHOLECALCIFEROL [Concomitant]
     Active Substance: CHOLECALCIFEROL
     Dosage: 1 DOSAGE FORM, QD
     Dates: start: 20241010
  12. ROSUVASTATIN [Concomitant]
     Active Substance: ROSUVASTATIN
     Dosage: 1 DOSAGE FORM, QW (FOR ONE MONTH AND IF TO)
     Dates: start: 20241010

REACTIONS (1)
  - Muscle disorder [Unknown]

NARRATIVE: CASE EVENT DATE: 20241007
